FAERS Safety Report 21083403 (Version 1)
Quarter: 2022Q3

REPORT INFORMATION
  Report Type: Spontaneous
  Country: MX (occurrence: MX)
  Receive Date: 20220714
  Receipt Date: 20220714
  Transmission Date: 20221026
  Serious: Yes (Other)
  Sender: FDA-Public Use
  Company Number: MX-AMNEAL PHARMACEUTICALS-2022-AMRX-02071

PATIENT
  Age: 64 Year
  Sex: Male

DRUGS (8)
  1. ALYMSYS [Suspect]
     Active Substance: BEVACIZUMAB-MALY
     Indication: Lung adenocarcinoma
     Dosage: EVERY 3 WEEKS FOR FOUR CYCLES
     Route: 065
     Dates: start: 202003
  2. ALYMSYS [Suspect]
     Active Substance: BEVACIZUMAB-MALY
     Indication: Metastases to adrenals
  3. ATEZOLIZUMAB [Suspect]
     Active Substance: ATEZOLIZUMAB
     Indication: Lung adenocarcinoma
     Dosage: 1200 MG EVERY 3 WEEKS FOR FOUR CYCLES
     Route: 065
     Dates: start: 202003
  4. ATEZOLIZUMAB [Suspect]
     Active Substance: ATEZOLIZUMAB
     Indication: Metastases to adrenals
  5. CARBOPLATIN [Suspect]
     Active Substance: CARBOPLATIN
     Indication: Lung adenocarcinoma
     Dosage: 4 AUC EVERY 3 WEEKS FOR FOUR CYCLES
     Route: 065
     Dates: start: 202003
  6. CARBOPLATIN [Suspect]
     Active Substance: CARBOPLATIN
     Indication: Metastases to adrenals
  7. PACLITAXEL [Suspect]
     Active Substance: PACLITAXEL
     Indication: Lung adenocarcinoma
     Dosage: 180 MG/M2 EVERY 3 WEEKS FOR FOUR CYCLES
     Route: 065
     Dates: start: 202003
  8. PACLITAXEL [Suspect]
     Active Substance: PACLITAXEL
     Indication: Metastases to adrenals

REACTIONS (1)
  - Anaphylactic reaction [Recovered/Resolved]
